FAERS Safety Report 5340851-2 (Version None)
Quarter: 2007Q2

REPORT INFORMATION
  Report Type: 
  Country: None (occurrence: None)
  Receive Date: 20070405
  Receipt Date: 20061211
  Transmission Date: 20071010
  Serious: No
  Sender: FDA-Public Use
  Company Number: US200612001749

PATIENT
  Age: 54 Year
  Sex: Female
  Weight: 66.7 kg

DRUGS (10)
  1. CYMBALTA [Suspect]
     Indication: DEPRESSION
     Dosage: 60 MG
     Dates: start: 20060601
  2. SYNTHROID [Concomitant]
  3. FENTANYL [Concomitant]
  4. ESTRACE [Concomitant]
  5. VIVELLE-DOT [Concomitant]
  6. METFORMIN HCL [Concomitant]
  7. GABAPENTIN [Concomitant]
  8. ACIPHEX [Concomitant]
  9. REGLAN /USA/ (METOCLOPRAMIDE HYDROCHLORIDE) [Concomitant]
  10. PANCREASE MT (AMYLASE, LIPASE, PROTEASE) [Concomitant]

REACTIONS (2)
  - THYROID FUNCTION TEST ABNORMAL [None]
  - WEIGHT INCREASED [None]
